FAERS Safety Report 18147958 (Version 2)
Quarter: 2020Q3

REPORT INFORMATION
  Report Type: Spontaneous
  Country: BR (occurrence: BR)
  Receive Date: 20200813
  Receipt Date: 20200928
  Transmission Date: 20201103
  Serious: Yes (Other)
  Sender: FDA-Public Use
  Company Number: BR-PFIZER INC-2020309559

PATIENT
  Age: 88 Year
  Sex: Male

DRUGS (1)
  1. FRONTAL [Suspect]
     Active Substance: ALPRAZOLAM
     Dosage: UNK

REACTIONS (4)
  - Product physical issue [Unknown]
  - Visual acuity reduced [Unknown]
  - Glaucoma [Unknown]
  - Poor quality product administered [Unknown]
